FAERS Safety Report 7513928-0 (Version None)
Quarter: 2011Q2

REPORT INFORMATION
  Report Type: 
  Country: None (occurrence: None)
  Receive Date: 20110531
  Receipt Date: 20110524
  Transmission Date: 20111010
  Serious: Yes (Disabling)
  Sender: FDA-Public Use
  Company Number: PHHO2011SG00786

PATIENT
  Sex: Female
  Weight: 18 kg

DRUGS (2)
  1. ILARIS [Suspect]
     Dosage: 105 MG, ONCE/SINGLE
     Route: 048
     Dates: end: 20101215
  2. ILARIS [Suspect]
     Indication: CHRONIC INFANTILE NEUROLOGICAL CUTANEOUS AND ARTICULAR SYNDROME
     Dosage: 35 MG, ONCE/SINGLE
     Route: 048
     Dates: start: 20100929

REACTIONS (4)
  - PYREXIA [None]
  - DISEASE PROGRESSION [None]
  - RASH [None]
  - DRUG INEFFECTIVE [None]
